FAERS Safety Report 13109935 (Version 2)
Quarter: 2017Q1

REPORT INFORMATION
  Report Type: Spontaneous
  Country: US (occurrence: US)
  Receive Date: 20170112
  Receipt Date: 20170310
  Transmission Date: 20170428
  Serious: Yes (Death, Other)
  Sender: FDA-Public Use
  Company Number: US-ASTELLAS-2016US050499

PATIENT
  Age: 84 Year
  Sex: Male

DRUGS (1)
  1. XTANDI [Suspect]
     Active Substance: ENZALUTAMIDE
     Indication: PROSTATE CANCER
     Route: 048
     Dates: start: 20161216

REACTIONS (14)
  - Confusional state [Unknown]
  - Seizure [Unknown]
  - Eyelid ptosis [Unknown]
  - Death [Fatal]
  - Malaise [Unknown]
  - Speech disorder [Unknown]
  - Somnolence [Unknown]
  - Vomiting [Unknown]
  - Underdose [Unknown]
  - Loss of consciousness [Unknown]
  - Nausea [Unknown]
  - General physical health deterioration [Unknown]
  - Fatigue [Unknown]
  - Asthenia [Unknown]

NARRATIVE: CASE EVENT DATE: 20161216
